FAERS Safety Report 24613278 (Version 1)
Quarter: 2024Q4

REPORT INFORMATION
  Report Type: Spontaneous
  Country: US (occurrence: US)
  Receive Date: 20241113
  Receipt Date: 20241113
  Transmission Date: 20250115
  Serious: No
  Sender: CSL BEHRING
  Company Number: US-BEH-2024169292

PATIENT
  Age: 60 Year
  Sex: Male

DRUGS (2)
  1. HUMATE-P [Suspect]
     Active Substance: HUMAN COAGULATION FACTOR VIII/VON WILLEBRAND FACTOR COMPLEX
     Dosage: 5000 INTERNATIONAL UNIT, PRN
     Route: 042
     Dates: start: 201403
  2. HUMATE-P [Suspect]
     Active Substance: HUMAN COAGULATION FACTOR VIII/VON WILLEBRAND FACTOR COMPLEX
     Dosage: 5000 INTERNATIONAL UNIT, PRN
     Route: 042
     Dates: start: 201403

REACTIONS (1)
  - Epistaxis [Not Recovered/Not Resolved]
